FAERS Safety Report 9493724 (Version 1)
Quarter: 2013Q3

REPORT INFORMATION
  Report Type: Spontaneous
  Country: US (occurrence: US)
  Receive Date: 20130902
  Receipt Date: 20130902
  Transmission Date: 20140515
  Serious: No
  Sender: FDA-Public Use
  Company Number: US-BAYER-2013-105625

PATIENT
  Age: 17 Year
  Sex: Male
  Weight: 91 kg

DRUGS (3)
  1. ALEVE CAPLET [Suspect]
     Indication: HEADACHE
     Dosage: 2 UNK, UNK
     Route: 048
     Dates: start: 2012
  2. IMITREX [Concomitant]
  3. ALLEGRA [Concomitant]

REACTIONS (1)
  - Off label use [None]
